FAERS Safety Report 22247427 (Version 3)
Quarter: 2023Q2

REPORT INFORMATION
  Report Type: Report from Study
  Country: US (occurrence: US)
  Receive Date: 20230425
  Receipt Date: 20230630
  Transmission Date: 20230722
  Serious: Yes (Hospitalization)
  Sender: FDA-Public Use
  Company Number: US-REGENERON PHARMACEUTICALS, INC.-2023-054712

PATIENT
  Age: 63 Year
  Sex: Male

DRUGS (18)
  1. INVESTIGATIONAL PRODUCT [Suspect]
     Active Substance: INVESTIGATIONAL PRODUCT
     Indication: Prostate cancer
     Dosage: 100 MG, WEEKLY, DOSE EXPANSION DL7
     Route: 042
     Dates: start: 20230228, end: 20230410
  2. INVESTIGATIONAL PRODUCT [Suspect]
     Active Substance: INVESTIGATIONAL PRODUCT
     Dosage: 100 MG, WEEKLY, DOSE EXPANSION DL7
     Route: 042
     Dates: start: 20230424, end: 20230501
  3. CEMIPLIMAB [Suspect]
     Active Substance: CEMIPLIMAB
     Indication: Prostate cancer
     Dosage: 350 MG, Q3W
     Route: 042
     Dates: start: 20230320, end: 20230410
  4. CEMIPLIMAB [Suspect]
     Active Substance: CEMIPLIMAB
     Dosage: 350 MG, Q3W
     Route: 042
     Dates: start: 20230501, end: 20230501
  5. TYLENOL [Concomitant]
     Active Substance: ACETAMINOPHEN
     Indication: Pyrexia
     Dosage: 650 MG, AS NECESSARY
     Route: 048
     Dates: start: 20230321, end: 20230321
  6. TYLENOL [Concomitant]
     Active Substance: ACETAMINOPHEN
     Indication: Cytokine release syndrome
     Dosage: 650 MG, Q3W
     Route: 048
     Dates: start: 20230410
  7. SODIUM CHLORIDE [Concomitant]
     Active Substance: SODIUM CHLORIDE
     Indication: Hyponatraemia
     Dosage: 1 L, ONCE
     Route: 042
     Dates: start: 20230410, end: 20230410
  8. IBUPROFEN [Concomitant]
     Active Substance: IBUPROFEN
     Indication: Back pain
     Dosage: 800 MG, AS NECESSARY
     Route: 048
     Dates: start: 202207, end: 20230409
  9. IBUPROFEN [Concomitant]
     Active Substance: IBUPROFEN
     Indication: Cancer pain
     Dosage: 800 MG, BID
     Route: 048
     Dates: start: 20230410
  10. ASCORBIC ACID [Concomitant]
     Active Substance: ASCORBIC ACID
     Indication: Product used for unknown indication
     Dosage: 1000 MG, QD
     Route: 048
     Dates: start: 20190821
  11. CALCIUM CARBONATE [Concomitant]
     Active Substance: CALCIUM CARBONATE
     Indication: Supplementation therapy
     Dosage: 1000 MG, QD
     Route: 048
     Dates: start: 20220302
  12. CHOLECALCIFEROL [Concomitant]
     Active Substance: CHOLECALCIFEROL
     Indication: Supplementation therapy
     Dosage: 5000 UINT, QD
     Route: 048
     Dates: start: 20220821
  13. IRON + FOLIC ACID [FOLIC ACID;IRON] [Concomitant]
     Indication: Supplementation therapy
     Dosage: 1 CAPSULE,QD
     Route: 048
     Dates: start: 20220331
  14. FERROUS SULFATE [Concomitant]
     Active Substance: FERROUS SULFATE
     Indication: Supplementation therapy
     Dosage: 325 MG, TID
     Route: 048
     Dates: start: 202303
  15. FAMOTIDINE [Concomitant]
     Active Substance: FAMOTIDINE
     Indication: Cytokine release syndrome
     Dosage: 20 MG, Q3W
     Route: 048
     Dates: start: 20230410
  16. XGEVA [Concomitant]
     Active Substance: DENOSUMAB
     Indication: Supportive care
     Dosage: 120 MG, QMO
     Route: 058
     Dates: start: 20230302
  17. ZINC GLUCONATE [Concomitant]
     Active Substance: ZINC GLUCONATE
     Indication: Supplementation therapy
     Dosage: 50 MG, QD
     Route: 048
     Dates: start: 20230525
  18. PREGABALIN [Concomitant]
     Active Substance: PREGABALIN
     Indication: Arthralgia
     Dosage: 75 MG, BID
     Route: 048
     Dates: start: 20230510

REACTIONS (2)
  - Uveitis [Recovered/Resolved]
  - Uveitis [Recovered/Resolved]

NARRATIVE: CASE EVENT DATE: 20230417
